FAERS Safety Report 8536385-4 (Version None)
Quarter: 2012Q3

REPORT INFORMATION
  Report Type: 
  Country: None (occurrence: None)
  Receive Date: 20120725
  Receipt Date: 20120419
  Transmission Date: 20120928
  Serious: Yes (Other)
  Sender: FDA-Public Use
  Company Number: US-ASTRAZENECA-2012SE47047

PATIENT
  Age: 58 Year
  Sex: Female

DRUGS (2)
  1. LIDOCAINE [Suspect]
     Route: 053
  2. LIDOCAINE [Suspect]
     Indication: LOCAL ANAESTHESIA
     Route: 053

REACTIONS (1)
  - STEVENS-JOHNSON SYNDROME [None]
